FAERS Safety Report 6165928-3 (Version None)
Quarter: 2009Q2

REPORT INFORMATION
  Report Type: 
  Country: None (occurrence: None)
  Receive Date: 20090422
  Receipt Date: 20090410
  Transmission Date: 20091009
  Serious: Yes (Other)
  Sender: FDA-Public Use
  Company Number: 233039K09USA

PATIENT
  Age: 54 Year
  Sex: Female
  Weight: 95 kg

DRUGS (7)
  1. REBIF [Suspect]
     Indication: MULTIPLE SCLEROSIS
     Dosage: 44 MCG, 3 IN 1 WEEKS, SUBCUTANEOUS
     Route: 058
     Dates: start: 20080206
  2. UNSPECIFIED PREMEDICATION (ALL OTHER THERAPEUTIC PRODUCTS) [Concomitant]
  3. CLONIDINE [Concomitant]
  4. LISINOPRIL [Concomitant]
  5. PROCARDIA [Concomitant]
  6. LEXAPRO [Concomitant]
  7. METFORMIN HCL [Concomitant]

REACTIONS (2)
  - DIABETES MELLITUS INADEQUATE CONTROL [None]
  - GLYCOSYLATED HAEMOGLOBIN INCREASED [None]
